APPROVED DRUG PRODUCT: AUGMENTIN ES-600
Active Ingredient: AMOXICILLIN; CLAVULANATE POTASSIUM
Strength: 600MG/5ML;EQ 42.9MG BASE/5ML
Dosage Form/Route: FOR SUSPENSION;ORAL
Application: N050755 | Product #001 | TE Code: AB
Applicant: US ANTIBIOTICS LLC
Approved: Jun 22, 2001 | RLD: Yes | RS: No | Type: RX